FAERS Safety Report 8881573 (Version 5)
Quarter: 2013Q4

REPORT INFORMATION
  Report Type: Spontaneous
  Country: US (occurrence: US)
  Receive Date: 20121102
  Receipt Date: 20131206
  Transmission Date: 20140711
  Serious: Yes (Disabling, Other)
  Sender: FDA-Public Use
  Company Number: US-009507513-1210USA010510

PATIENT
  Sex: Female
  Weight: 54.42 kg

DRUGS (3)
  1. FOSAMAX [Suspect]
     Indication: OSTEOPOROSIS
     Dosage: 70 MG, UNK
     Route: 048
     Dates: start: 200505, end: 200608
  2. FOSAMAX [Suspect]
     Indication: OSTEOPENIA
     Dosage: 70 MG, UNK
     Route: 048
     Dates: start: 20061013, end: 2008
  3. ALENDRONATE SODIUM [Suspect]
     Indication: OSTEOPOROSIS
     Dosage: 70 MG, QW
     Route: 048
     Dates: start: 2008, end: 20100728

REACTIONS (42)
  - Osteonecrosis [Unknown]
  - Cholecystectomy [Unknown]
  - Exostosis of jaw [Unknown]
  - Osteomyelitis [Unknown]
  - Excision of palatal lesion [Unknown]
  - Nasal congestion [Unknown]
  - Sleep disorder [Unknown]
  - Depression [Recovered/Resolved]
  - Bursitis [Unknown]
  - Palatal disorder [Not Recovered/Not Resolved]
  - Scar [Not Recovered/Not Resolved]
  - Oral mucosal blistering [Recovered/Resolved]
  - Drug effect incomplete [Not Recovered/Not Resolved]
  - Nasal disorder [Unknown]
  - Stress [Unknown]
  - Metaplasia [Unknown]
  - Rhinitis allergic [Unknown]
  - Colon adenoma [Unknown]
  - Retinal scar [Unknown]
  - Vertigo positional [Unknown]
  - Bone lesion excision [Unknown]
  - Hyperkeratosis [Unknown]
  - Seborrhoeic keratosis [Unknown]
  - Skin discolouration [Unknown]
  - Skin injury [Unknown]
  - Actinic keratosis [Unknown]
  - Blepharitis [Not Recovered/Not Resolved]
  - Actinomycosis [Unknown]
  - Dacryostenosis acquired [Not Recovered/Not Resolved]
  - Endodontic procedure [Unknown]
  - Bruxism [Unknown]
  - Increased tendency to bruise [Unknown]
  - Periodontal disease [Unknown]
  - Tooth extraction [Unknown]
  - Dental caries [Not Recovered/Not Resolved]
  - Oral surgery [Unknown]
  - Tooth disorder [Unknown]
  - Conjunctivitis [Not Recovered/Not Resolved]
  - Pain in jaw [Unknown]
  - Drug hypersensitivity [Unknown]
  - Constipation [Unknown]
  - Headache [Recovered/Resolved]
